FAERS Safety Report 20545638 (Version 1)
Quarter: 2022Q1

REPORT INFORMATION
  Report Type: Spontaneous
  Country: US (occurrence: US)
  Receive Date: 20220303
  Receipt Date: 20220303
  Transmission Date: 20220424
  Serious: No
  Sender: FDA-Public Use
  Company Number: US-TARO-2022TAR00038

PATIENT

DRUGS (1)
  1. MICONAZOLE NITRATE [Suspect]
     Active Substance: MICONAZOLE NITRATE
     Indication: Vulvovaginal mycotic infection
     Dosage: UNK, ONCE
     Route: 067
     Dates: start: 20220105, end: 20220105

REACTIONS (1)
  - Administration site pain [Recovered/Resolved]

NARRATIVE: CASE EVENT DATE: 20220105
